FAERS Safety Report 25085969 (Version 1)
Quarter: 2025Q1

REPORT INFORMATION
  Report Type: Spontaneous
  Country: US (occurrence: None)
  Receive Date: 20250316
  Receipt Date: 20250316
  Transmission Date: 20250408
  Serious: Yes (Hospitalization)
  Sender: FDA-CTU
  Company Number: None

PATIENT
  Age: 31 Year
  Sex: Male

DRUGS (1)
  1. WARFARIN [Suspect]
     Active Substance: WARFARIN
     Dosage: FREQUENCY : DAILY;?
     Route: 048

REACTIONS (5)
  - Fall [None]
  - Cerebral haemorrhage [None]
  - Arterial injury [None]
  - Haemorrhage [None]
  - Intraventricular haemorrhage [None]

NARRATIVE: CASE EVENT DATE: 20250126
